FAERS Safety Report 9186053 (Version 1)
Quarter: 2013Q1

REPORT INFORMATION
  Report Type: Spontaneous
  Country: IT (occurrence: IT)
  Receive Date: 20130325
  Receipt Date: 20130325
  Transmission Date: 20140127
  Serious: Yes (Life-Threatening)
  Sender: FDA-Public Use
  Company Number: IT-MYLANLABS-2013S1005798

PATIENT
  Age: 70 Year
  Sex: Male

DRUGS (9)
  1. IRINOTECAN [Suspect]
     Indication: COLON CANCER
     Dosage: CYCLIC
     Route: 042
     Dates: start: 20120528, end: 20120528
  2. IRINOTECAN [Suspect]
     Indication: COLON CANCER
     Dosage: CYCLIC
     Route: 042
     Dates: start: 20120622
  3. IRINOTECAN [Suspect]
     Indication: COLON CANCER
     Dates: end: 20120907
  4. 5-FLUOROURACIL [Suspect]
     Indication: COLON CANCER
     Dosage: CYCLIC
     Route: 042
     Dates: start: 20120528, end: 20120528
  5. 5-FLUOROURACIL [Suspect]
     Indication: COLON CANCER
     Route: 042
     Dates: start: 20120622
  6. 5-FLUOROURACIL [Suspect]
     Indication: COLON CANCER
     Dates: end: 20120907
  7. BEVACIZUMAB [Suspect]
     Indication: COLON CANCER
     Dosage: CYCLIC
     Route: 042
     Dates: start: 20120528, end: 20120528
  8. BEVACIZUMAB [Suspect]
     Indication: COLON CANCER
     Route: 042
     Dates: start: 20120622
  9. BEVACIZUMAB [Suspect]
     Indication: COLON CANCER
     Dates: end: 20121015

REACTIONS (1)
  - Atrial fibrillation [Recovered/Resolved]
